FAERS Safety Report 17171498 (Version 3)
Quarter: 2020Q2

REPORT INFORMATION
  Report Type: Spontaneous
  Country: ES (occurrence: ES)
  Receive Date: 20191218
  Receipt Date: 20200526
  Transmission Date: 20200713
  Serious: Yes (Hospitalization)
  Sender: FDA-Public Use
  Company Number: ES-ALLERGAN-1951419US

PATIENT
  Sex: Female

DRUGS (2)
  1. IBUPROFENO [Suspect]
     Active Substance: IBUPROFEN
     Indication: PREMENSTRUAL PAIN
     Dosage: UNK
     Route: 048
     Dates: start: 201901, end: 201907
  2. DEOXYCHOLIC ACID UNK [Suspect]
     Active Substance: DEOXYCHOLIC ACID
     Indication: MESOTHERAPY
     Route: 058
     Dates: start: 201905, end: 201906

REACTIONS (1)
  - Acute kidney injury [Recovering/Resolving]

NARRATIVE: CASE EVENT DATE: 20190721
